FAERS Safety Report 22229383 (Version 1)
Quarter: 2023Q2

REPORT INFORMATION
  Report Type: Spontaneous
  Country: CN (occurrence: CN)
  Receive Date: 20230419
  Receipt Date: 20230419
  Transmission Date: 20230721
  Serious: Yes (Other)
  Sender: FDA-Public Use
  Company Number: CN-AMGEN-CHNSP2023063629

PATIENT
  Age: 10 Year
  Sex: Female
  Weight: 22 kg

DRUGS (3)
  1. BLINATUMOMAB [Suspect]
     Active Substance: BLINATUMOMAB
     Indication: Acute lymphocytic leukaemia
     Dosage: 9 MILLIGRAM, QD
     Route: 042
     Dates: start: 20230313, end: 20230318
  2. BLINATUMOMAB [Suspect]
     Active Substance: BLINATUMOMAB
     Dosage: UNK, INFUSION RATE WAS ADJUSTED FROM 4ML/H TO 2.5ML/H
     Route: 042
     Dates: start: 2023
  3. SODIUM CHLORIDE [Concomitant]
     Active Substance: SODIUM CHLORIDE
     Dosage: 125 MILLILITER, QD
     Route: 042
     Dates: start: 20230313, end: 20230318

REACTIONS (2)
  - Oxygen saturation decreased [Recovering/Resolving]
  - Pyrexia [Recovering/Resolving]

NARRATIVE: CASE EVENT DATE: 20230313
